FAERS Safety Report 6447000-8 (Version None)
Quarter: 2009Q4

REPORT INFORMATION
  Report Type: 
  Country: None (occurrence: None)
  Receive Date: 20091119
  Receipt Date: 20091113
  Transmission Date: 20100525
  Serious: Yes (Death)
  Sender: FDA-Public Use
  Company Number: US-TEVA-214313USA

PATIENT
  Age: 72 Year
  Sex: Male
  Weight: 135.75 kg

DRUGS (13)
  1. BETAMETHASONE VALERATE CREAM 0.1% [Suspect]
     Indication: NEUROPATHY PERIPHERAL
     Dosage: APPLIED EVERY 4 HRS AS NEEDED
     Dates: start: 20091016, end: 20091016
  2. FENTANYL-100 [Suspect]
     Indication: NEUROPATHY PERIPHERAL
     Dosage: 1 PATCH, SINGLE (RIGHT CHEST)
     Route: 062
     Dates: start: 20091017, end: 20091020
  3. METOPROLOL [Suspect]
     Indication: BLOOD PRESSURE
     Route: 048
     Dates: start: 20090801, end: 20091019
  4. VICODIN [Suspect]
     Indication: PAIN
     Dosage: 10/325 MG
     Route: 048
     Dates: start: 20091017, end: 20091020
  5. ZOLPIDEM TARTRATE [Suspect]
     Indication: INSOMNIA
     Dosage: 1 TABLET PRN SLEEP
     Route: 048
     Dates: start: 20090101, end: 20091020
  6. AMMONIUM LACTATE [Suspect]
     Indication: NEUROPATHY PERIPHERAL
     Dosage: APPLY BID TO SKIN
     Route: 061
     Dates: start: 20091019, end: 20091019
  7. UROXATRAL [Suspect]
     Indication: MICTURITION DISORDER
     Dosage: 1 TABLET DAILY
     Route: 048
     Dates: start: 20090301, end: 20091019
  8. OXYCODONE HCL [Suspect]
     Indication: PAIN
     Dosage: 1 TABLET BID TO TID PRN
     Route: 048
     Dates: start: 20030101, end: 20091016
  9. NOVALAC [Suspect]
     Indication: DIABETES MELLITUS
     Dosage: 15 G TID
     Route: 058
     Dates: start: 20070101, end: 20091019
  10. INSULIN GLARGINE [Suspect]
     Indication: DIABETES MELLITUS
     Dosage: 25 G DAILY
     Route: 058
     Dates: start: 20070101, end: 20091019
  11. WARFARIN SODIUM [Suspect]
     Indication: DRUG USE FOR UNKNOWN INDICATION
     Dosage: 6 MG ONE DAY THEN 7.5 MG THE NEXT DAY (ALTERNATING DAYS)
     Route: 048
     Dates: start: 20060101, end: 20091019
  12. DULOXETINE HYDROCHLORIDE [Suspect]
     Indication: INSOMNIA
     Dates: end: 20091019
  13. DIPROLENT [Suspect]
     Indication: DRUG USE FOR UNKNOWN INDICATION
     Dates: end: 20091019

REACTIONS (10)
  - ANEURYSM [None]
  - APNOEA [None]
  - BRAIN INJURY [None]
  - COLD SWEAT [None]
  - FALL [None]
  - FEELING ABNORMAL [None]
  - HAEMORRHAGIC STROKE [None]
  - HYPERTENSION [None]
  - INSOMNIA [None]
  - MALAISE [None]
